FAERS Safety Report 7656700-3 (Version None)
Quarter: 2011Q3

REPORT INFORMATION
  Report Type: 
  Country: None (occurrence: None)
  Receive Date: 20110729
  Receipt Date: 20110721
  Transmission Date: 20111222
  Serious: Yes (Hospitalization, Other)
  Sender: FDA-Public Use
  Company Number: JPI-P-015642

PATIENT
  Age: 58 Year
  Sex: Male
  Weight: 145.6046 kg

DRUGS (2)
  1. XYREM [Suspect]
     Indication: NARCOLEPSY
     Dosage: ORAL ;  7.5 GM (3.75 GM,2 IN 1 D),ORAL
     Route: 048
     Dates: start: 20070901
  2. XYREM [Suspect]
     Indication: SOMNOLENCE
     Dosage: ORAL ;  7.5 GM (3.75 GM,2 IN 1 D),ORAL
     Route: 048
     Dates: start: 20070901

REACTIONS (1)
  - HIP ARTHROPLASTY [None]
